FAERS Safety Report 16925707 (Version 1)
Quarter: 2019Q4

REPORT INFORMATION
  Report Type: Spontaneous
  Country: GB (occurrence: GB)
  Receive Date: 20191016
  Receipt Date: 20191016
  Transmission Date: 20200122
  Serious: Yes (Life-Threatening, Hospitalization)
  Sender: FDA-Public Use
  Company Number: GB-MYLANLABS-2019M1097148

PATIENT
  Age: 71 Year
  Sex: Female
  Weight: 70 kg

DRUGS (5)
  1. REMIFENTANIL [Concomitant]
     Active Substance: REMIFENTANIL
  2. METARAMINOL [Concomitant]
     Active Substance: METARAMINOL
  3. PROPOFOL. [Concomitant]
     Active Substance: PROPOFOL
  4. ROCURONIUM [Suspect]
     Active Substance: ROCURONIUM BROMIDE
     Indication: GENERAL ANAESTHESIA
     Dosage: 50 MILLIGRAM
     Route: 042
     Dates: start: 20190419, end: 20190419
  5. NIMODIPINE. [Concomitant]
     Active Substance: NIMODIPINE

REACTIONS (4)
  - Pulmonary oedema [Recovering/Resolving]
  - Anaphylactic reaction [Recovered/Resolved with Sequelae]
  - Disorientation [Recovering/Resolving]
  - Subclavian artery occlusion [Recovering/Resolving]

NARRATIVE: CASE EVENT DATE: 20190419
